FAERS Safety Report 10697091 (Version 2)
Quarter: 2015Q1

REPORT INFORMATION
  Report Type: Spontaneous
  Country: US (occurrence: US)
  Receive Date: 20150108
  Receipt Date: 20150112
  Transmission Date: 20150721
  Serious: Yes (Death)
  Sender: FDA-Public Use
  Company Number: US-HORIZON-ACT-0002-2015

PATIENT
  Age: 34 Year
  Sex: Male

DRUGS (1)
  1. ACTIMMUNE [Suspect]
     Active Substance: INTERFERON GAMMA-1B
     Indication: MYCOBACTERIUM AVIUM COMPLEX INFECTION
     Dates: start: 20140321

REACTIONS (4)
  - Peritonitis bacterial [Fatal]
  - Mycobacterium avium complex infection [Fatal]
  - Off label use [Unknown]
  - Hepatic failure [Fatal]

NARRATIVE: CASE EVENT DATE: 20150105
